FAERS Safety Report 6031872-5 (Version None)
Quarter: 2008Q4

REPORT INFORMATION
  Report Type: 
  Country: None (occurrence: None)
  Receive Date: 20081224
  Receipt Date: 20080904
  Transmission Date: 20090506
  Serious: No
  Sender: FDA-Public Use
  Company Number: 2008PV036614

PATIENT
  Age: 35 Year
  Sex: Female

DRUGS (9)
  1. SYMLIN [Suspect]
     Indication: TYPE 1 DIABETES MELLITUS
     Dosage: 45 MCG; ; SC, 60 MCG; ; SC
     Route: 058
     Dates: start: 20080101, end: 20080101
  2. SYMLIN [Suspect]
     Indication: TYPE 1 DIABETES MELLITUS
     Dosage: 45 MCG; ; SC, 60 MCG; ; SC
     Route: 058
     Dates: start: 20080101
  3. SYMLIN [Suspect]
     Indication: TYPE 1 DIABETES MELLITUS
     Dosage: 45 MCG; ; SC, 60 MCG; ; SC
     Route: 058
     Dates: start: 20080601
  4. SYMLIN [Suspect]
     Indication: TYPE 1 DIABETES MELLITUS
     Dosage: 54 MCG; ; SC, 39 MCG; ; SC, 45 MCG; ; SC, ; SC, 15 MCG; ; SC
     Route: 058
     Dates: start: 20070101, end: 20070101
  5. SYMLIN [Suspect]
     Indication: TYPE 1 DIABETES MELLITUS
     Dosage: 54 MCG; ; SC, 39 MCG; ; SC, 45 MCG; ; SC, ; SC, 15 MCG; ; SC
     Route: 058
     Dates: start: 20070101, end: 20070101
  6. SYMLIN [Suspect]
     Indication: TYPE 1 DIABETES MELLITUS
     Dosage: 54 MCG; ; SC, 39 MCG; ; SC, 45 MCG; ; SC, ; SC, 15 MCG; ; SC
     Route: 058
     Dates: start: 20070101, end: 20070101
  7. SYMLIN [Suspect]
     Indication: TYPE 1 DIABETES MELLITUS
     Dosage: 54 MCG; ; SC, 39 MCG; ; SC, 45 MCG; ; SC, ; SC, 15 MCG; ; SC
     Route: 058
     Dates: start: 20080601, end: 20080601
  8. SYMLIN [Suspect]
     Indication: TYPE 1 DIABETES MELLITUS
     Dosage: 54 MCG; ; SC, 39 MCG; ; SC, 45 MCG; ; SC, ; SC, 15 MCG; ; SC
     Route: 058
     Dates: start: 20080601, end: 20080601
  9. HUMALOG [Concomitant]

REACTIONS (6)
  - BLINDNESS TRANSIENT [None]
  - BLOOD GLUCOSE DECREASED [None]
  - BLOOD GLUCOSE FLUCTUATION [None]
  - FEELING ABNORMAL [None]
  - MIGRAINE WITH AURA [None]
  - NAUSEA [None]
